FAERS Safety Report 22134583 (Version 1)
Quarter: 2023Q1

REPORT INFORMATION
  Report Type: Spontaneous
  Country: RS (occurrence: None)
  Receive Date: 20230324
  Receipt Date: 20230324
  Transmission Date: 20230417
  Serious: Yes (Other)
  Sender: FDA-Public Use
  Company Number: 2023A012999

PATIENT
  Age: 23 Year
  Sex: Male

DRUGS (3)
  1. KOSELUGO [Suspect]
     Active Substance: SELUMETINIB
     Indication: Neuroectodermal neoplasm
     Dosage: 60 X 25MG
     Route: 048
     Dates: start: 202212
  2. KOSELUGO [Suspect]
     Active Substance: SELUMETINIB
     Indication: Neuroectodermal neoplasm
     Dosage: 60 X 25MG
     Route: 048
     Dates: start: 202212
  3. DABRAFENIB [Concomitant]
     Active Substance: DABRAFENIB
     Indication: Neuroectodermal neoplasm

REACTIONS (3)
  - Epilepsy [Unknown]
  - Therapeutic product effect decreased [Unknown]
  - Off label use [Unknown]

NARRATIVE: CASE EVENT DATE: 20221201
